FAERS Safety Report 17063776 (Version 1)
Quarter: 2019Q4

REPORT INFORMATION
  Report Type: Spontaneous
  Country: JP (occurrence: KZ)
  Receive Date: 20191122
  Receipt Date: 20191122
  Transmission Date: 20200122
  Serious: Yes (Death, Hospitalization)
  Sender: FDA-Public Use
  Company Number: KZ-BAYER-2019-204218

PATIENT
  Age: 60 Year
  Sex: Female
  Weight: 34.01 kg

DRUGS (7)
  1. CAPREOMYCIN [CAPREOMYCIN SULFATE] [Suspect]
     Active Substance: CAPREOMYCIN SULFATE
     Indication: PULMONARY TUBERCULOSIS
  2. PYRAZINAMIDE. [Suspect]
     Active Substance: PYRAZINAMIDE
     Indication: PULMONARY TUBERCULOSIS
     Dosage: 1500 MG, QD
     Route: 048
     Dates: start: 20180924
  3. DELAMANID [Suspect]
     Active Substance: DELAMANID
     Indication: PULMONARY TUBERCULOSIS
     Dosage: 20 MG, QD
     Route: 048
     Dates: start: 20180924, end: 20190206
  4. LINEZOLID. [Suspect]
     Active Substance: LINEZOLID
     Indication: PULMONARY TUBERCULOSIS
     Dosage: 600 MG, QD
     Route: 048
     Dates: start: 20180924
  5. BEDAQUILINE [Suspect]
     Active Substance: BEDAQUILINE
     Indication: PULMONARY TUBERCULOSIS
     Dosage: 400 MG, QD
     Route: 048
     Dates: start: 20190212
  6. AVELOX [Suspect]
     Active Substance: MOXIFLOXACIN HYDROCHLORIDE
     Indication: PULMONARY TUBERCULOSIS
     Dosage: 400 MG, QD
     Route: 048
     Dates: start: 20180924, end: 20190228
  7. CLOFAZIMINE [Suspect]
     Active Substance: CLOFAZIMINE
     Indication: PULMONARY TUBERCULOSIS
     Dosage: 200 MG, QD
     Route: 048
     Dates: start: 20190212

REACTIONS (7)
  - Peritonitis [Unknown]
  - Septic shock [Fatal]
  - Intestinal obstruction [Unknown]
  - Duodenal perforation [Unknown]
  - Cholecystitis chronic [Unknown]
  - Pyelonephritis chronic [Unknown]
  - Ulcer [Unknown]

NARRATIVE: CASE EVENT DATE: 20191011
